FAERS Safety Report 18292921 (Version 25)
Quarter: 2022Q4

REPORT INFORMATION
  Report Type: Report from Study
  Country: DE (occurrence: DE)
  Receive Date: 20200921
  Receipt Date: 20221209
  Transmission Date: 20230112
  Serious: Yes (Hospitalization, Other)
  Sender: FDA-Public Use
  Company Number: DE-ROCHE-2546129

PATIENT
  Age: 44 Year
  Sex: Female
  Weight: 65 kg

DRUGS (133)
  1. OXYCODONE HYDROCHLORIDE [Suspect]
     Active Substance: OXYCODONE HYDROCHLORIDE
     Indication: Pain
     Dosage: 10 MG, BID (TOGETHER WITH NALAXONE)
     Route: 065
     Dates: end: 20210513
  2. OXYCODONE HYDROCHLORIDE [Suspect]
     Active Substance: OXYCODONE HYDROCHLORIDE
     Dosage: 20 MG, BID
     Route: 065
     Dates: end: 20210513
  3. OXYCODONE HYDROCHLORIDE [Suspect]
     Active Substance: OXYCODONE HYDROCHLORIDE
     Dosage: 5 MILLIGRAM
     Route: 065
  4. NABIXIMOLS [Suspect]
     Active Substance: NABIXIMOLS
     Indication: Product used for unknown indication
     Dosage: 2-2-2, 2 PUFFS EACH
     Route: 065
     Dates: start: 202007
  5. PANTOPRAZOLE [Suspect]
     Active Substance: PANTOPRAZOLE
     Indication: Product used for unknown indication
     Dosage: 20 MG, UNK
     Route: 065
  6. OCREVUS [Suspect]
     Active Substance: OCRELIZUMAB
     Indication: Secondary progressive multiple sclerosis
     Dosage: 600 MG, (168 DAY INTERVAL)
     Route: 042
     Dates: start: 20210715
  7. OCREVUS [Suspect]
     Active Substance: OCRELIZUMAB
     Dosage: 2X 10 MILLILITRES
     Route: 042
     Dates: start: 20200813
  8. OCREVUS [Suspect]
     Active Substance: OCRELIZUMAB
     Dosage: 300 MG, UNK
     Route: 042
     Dates: start: 20200220
  9. OCREVUS [Suspect]
     Active Substance: OCRELIZUMAB
     Dosage: 600 MG, (168 DAY INTERVAL)
     Route: 042
     Dates: start: 20200206
  10. OCREVUS [Suspect]
     Active Substance: OCRELIZUMAB
     Dosage: 600 MILLIGRAM
     Route: 042
     Dates: start: 20200206
  11. CORTISONE [Suspect]
     Active Substance: CORTISONE
     Indication: Product used for unknown indication
     Dosage: 1000 MG, 3X/DAY
     Route: 065
  12. NALOXONE HYDROCHLORIDE [Suspect]
     Active Substance: NALOXONE HYDROCHLORIDE
     Indication: Product used for unknown indication
     Dosage: 5 MG, BID (TOGETHER WITH OXYCODON)
     Route: 065
     Dates: end: 20210513
  13. NALOXONE HYDROCHLORIDE [Suspect]
     Active Substance: NALOXONE HYDROCHLORIDE
     Dosage: 2.5 MILLIGRAM
     Route: 065
  14. COMIRNATY [Suspect]
     Active Substance: TOZINAMERAN
     Indication: COVID-19 immunisation
     Dosage: NEXT DOSE ON: 28/MAY/2021
     Route: 042
     Dates: start: 20210428
  15. AMITRIPTYLINE [Concomitant]
     Active Substance: AMITRIPTYLINE
     Indication: Pain
     Dosage: 0-0-1
     Route: 065
  16. AMITRIPTYLINE [Concomitant]
     Active Substance: AMITRIPTYLINE
     Dosage: 25 MG, DAILY (25 MG, 1X/DAY)
     Dates: start: 2019
  17. AMITRIPTYLINE [Concomitant]
     Active Substance: AMITRIPTYLINE
     Dosage: 25 MG, DAILY (0-0-1)
     Route: 065
  18. AMITRIPTYLINE [Concomitant]
     Active Substance: AMITRIPTYLINE
     Dosage: 25 MILLIGRAM, DAILY
     Route: 065
  19. AMITRIPTYLINE [Concomitant]
     Active Substance: AMITRIPTYLINE
     Dosage: 25 MG, DAILY (0-0-1)
     Route: 065
  20. AMITRIPTYLINE [Concomitant]
     Active Substance: AMITRIPTYLINE
     Dosage: 25 MILLIGRAM, DAILY
     Route: 065
  21. AMITRIPTYLINE [Concomitant]
     Active Substance: AMITRIPTYLINE
     Dosage: 25 MG, DAILY (0-0-1)
     Route: 065
  22. AMITRIPTYLINE [Concomitant]
     Active Substance: AMITRIPTYLINE
     Dosage: 25 MILLIGRAM, DAILY
     Route: 065
  23. AMITRIPTYLINE [Concomitant]
     Active Substance: AMITRIPTYLINE
     Dosage: 25 MG, DAILY (0-0-1)
  24. AMITRIPTYLINE [Concomitant]
     Active Substance: AMITRIPTYLINE
     Dosage: 0-0-1
     Route: 065
  25. AMITRIPTYLINE [Concomitant]
     Active Substance: AMITRIPTYLINE
     Dosage: 25 MG, DAILY (0-0-1)
     Route: 065
  26. AMITRIPTYLINE [Concomitant]
     Active Substance: AMITRIPTYLINE
     Dosage: 50 MG, DAILY (0-0-1)
     Route: 065
  27. AMITRIPTYLINE [Concomitant]
     Active Substance: AMITRIPTYLINE
     Dosage: 25 MG, DAILY (0-0-1)
     Route: 065
  28. AMITRIPTYLINE [Concomitant]
     Active Substance: AMITRIPTYLINE
     Dosage: 50 MG, DAILY (0-0-1)
     Route: 065
  29. AMITRIPTYLINE [Concomitant]
     Active Substance: AMITRIPTYLINE
     Dosage: 25 MG, DAILY (0-0-1)
     Route: 065
  30. AMITRIPTYLINE [Concomitant]
     Active Substance: AMITRIPTYLINE
     Dosage: 50 MG, DAILY (0-0-1)
     Route: 065
  31. AMITRIPTYLINE [Concomitant]
     Active Substance: AMITRIPTYLINE
     Dosage: 25 MG, DAILY (0-0-1)
     Route: 048
  32. AMITRIPTYLINE [Concomitant]
     Active Substance: AMITRIPTYLINE
     Dosage: 50 MG, DAILY (0-0-1)
     Route: 065
  33. AMITRIPTYLINE [Concomitant]
     Active Substance: AMITRIPTYLINE
     Dosage: 25 MG, DAILY (0-0-1)
     Route: 065
  34. AMITRIPTYLINE [Concomitant]
     Active Substance: AMITRIPTYLINE
     Dosage: 50 MG, DAILY (0-0-1)
     Route: 065
  35. AMITRIPTYLINE [Concomitant]
     Active Substance: AMITRIPTYLINE
     Dosage: 25 MG, DAILY (0-0-1)
     Route: 065
  36. AMITRIPTYLINE [Concomitant]
     Active Substance: AMITRIPTYLINE
     Dosage: 50 MG, DAILY (0-0-1)
     Route: 065
  37. ACETAMINOPHEN [Concomitant]
     Active Substance: ACETAMINOPHEN
     Indication: Product used for unknown indication
     Dosage: UNK (UP TO 3 TIMES PER DAY)
     Route: 065
  38. ACETAMINOPHEN [Concomitant]
     Active Substance: ACETAMINOPHEN
     Dosage: UNK, DAILY (UNK UNK, TID)
     Route: 065
  39. ACETAMINOPHEN [Concomitant]
     Active Substance: ACETAMINOPHEN
     Dosage: 1 DF, DAILY (UNK UNK, TID)
     Route: 065
  40. ACETAMINOPHEN [Concomitant]
     Active Substance: ACETAMINOPHEN
     Dosage: UNK
     Route: 065
  41. ACETAMINOPHEN [Concomitant]
     Active Substance: ACETAMINOPHEN
     Dosage: UP TO 3 TIMES PER DAY
     Route: 065
  42. ACETAMINOPHEN [Concomitant]
     Active Substance: ACETAMINOPHEN
     Dosage: UP TO 3 TIMES PER DAY
     Route: 065
  43. ACETAMINOPHEN [Concomitant]
     Active Substance: ACETAMINOPHEN
     Dosage: UP TO 3 TIMES PER DAY
  44. PREGABALIN [Concomitant]
     Active Substance: PREGABALIN
     Indication: Pain
     Dosage: 600 MG, UNK
     Route: 065
  45. PREGABALIN [Concomitant]
     Active Substance: PREGABALIN
     Dosage: 600 MG, UNK
     Route: 065
  46. PREGABALIN [Concomitant]
     Active Substance: PREGABALIN
     Dosage: 200 MG, TID
     Route: 065
  47. PREGABALIN [Concomitant]
     Active Substance: PREGABALIN
     Dosage: 200 MG, TID (100MG 2-2-2)
     Route: 065
  48. PREGABALIN [Concomitant]
     Active Substance: PREGABALIN
     Dosage: 600 MG, UNK
     Route: 065
  49. PREGABALIN [Concomitant]
     Active Substance: PREGABALIN
     Dosage: 200 MG, TID
     Route: 065
  50. PREGABALIN [Concomitant]
     Active Substance: PREGABALIN
     Dosage: 100 MG, TID (100MG 2-2-2)
     Route: 065
  51. PREGABALIN [Concomitant]
     Active Substance: PREGABALIN
     Dosage: 600 MG, UNK
     Route: 065
  52. PREGABALIN [Concomitant]
     Active Substance: PREGABALIN
     Dosage: 200 MG, TID
     Route: 065
  53. PREGABALIN [Concomitant]
     Active Substance: PREGABALIN
     Dosage: 100 MG, TID (0.16/ DAY) (2-2-2)
     Route: 065
  54. PREGABALIN [Concomitant]
     Active Substance: PREGABALIN
     Dosage: 600 MG, UNK
     Route: 065
  55. PREGABALIN [Concomitant]
     Active Substance: PREGABALIN
     Dosage: 200 MG, TID (0.33/ DAY)
     Route: 065
  56. PREGABALIN [Concomitant]
     Active Substance: PREGABALIN
     Dosage: 200 MG, TID (0.16/ DAY) (2-2-2)
     Route: 065
  57. PREGABALIN [Concomitant]
     Active Substance: PREGABALIN
     Dosage: 600 MG, UNK
     Route: 065
  58. PREGABALIN [Concomitant]
     Active Substance: PREGABALIN
     Dosage: 200 MG, (FREQUENCY- 0.33/ DAY)
     Route: 065
  59. PREGABALIN [Concomitant]
     Active Substance: PREGABALIN
     Dosage: 100 MG, 0.16/ DAY (2-2-2)
     Route: 065
  60. PREGABALIN [Concomitant]
     Active Substance: PREGABALIN
     Dosage: 600 MG, UNK
     Route: 065
  61. PREGABALIN [Concomitant]
     Active Substance: PREGABALIN
     Dosage: 200 MG, UNK (0.33/ DAY)
     Route: 065
  62. PREGABALIN [Concomitant]
     Active Substance: PREGABALIN
     Dosage: 600 MG, UNK
     Dates: start: 2019
  63. PREGABALIN [Concomitant]
     Active Substance: PREGABALIN
     Dosage: 600 MG, UNK
     Route: 065
  64. PREGABALIN [Concomitant]
     Active Substance: PREGABALIN
     Dosage: 2-2-2
     Route: 065
  65. PREGABALIN [Concomitant]
     Active Substance: PREGABALIN
     Dosage: 200 MG, UNK (0.33/ DAY)
     Route: 065
  66. PREGABALIN [Concomitant]
     Active Substance: PREGABALIN
     Dosage: 600 MG, UNK
     Route: 065
  67. PREGABALIN [Concomitant]
     Active Substance: PREGABALIN
     Dosage: 100 MG, 0.16/ DAY (2-2-2)
     Route: 065
  68. PREGABALIN [Concomitant]
     Active Substance: PREGABALIN
     Dosage: 200 MG, UNK (0.33/ DAY)
     Route: 065
  69. PREGABALIN [Concomitant]
     Active Substance: PREGABALIN
     Dosage: 600 MG, UNK
     Route: 065
  70. PREGABALIN [Concomitant]
     Active Substance: PREGABALIN
     Dosage: 100 MG, 0.16/ DAY (2-2-2)
     Route: 065
  71. PREGABALIN [Concomitant]
     Active Substance: PREGABALIN
     Dosage: 200 MG, UNK (0.33/ DAY)
     Route: 065
  72. PREGABALIN [Concomitant]
     Active Substance: PREGABALIN
     Dosage: 600 MG, UNK
     Route: 065
  73. PREGABALIN [Concomitant]
     Active Substance: PREGABALIN
     Dosage: 100 MG, 0.16/ DAY (2-2-2)
     Route: 065
  74. PREGABALIN [Concomitant]
     Active Substance: PREGABALIN
     Dosage: 200 MG, UNK (0.33/ DAY)
     Route: 065
  75. PREGABALIN [Concomitant]
     Active Substance: PREGABALIN
     Dosage: 600 MG, UNK
     Route: 065
  76. PREGABALIN [Concomitant]
     Active Substance: PREGABALIN
     Dosage: 100 MG, 0.16/ DAY (2-2-2)
     Route: 065
  77. PREGABALIN [Concomitant]
     Active Substance: PREGABALIN
     Dosage: 200 MG, UNK (0.33/ DAY)
     Route: 065
  78. PREGABALIN [Concomitant]
     Active Substance: PREGABALIN
     Dosage: 600 MG, UNK
     Route: 065
  79. PREGABALIN [Concomitant]
     Active Substance: PREGABALIN
     Dosage: 100 MG, 0.16/ DAY (2-2-2)
     Route: 065
  80. PREGABALIN [Concomitant]
     Active Substance: PREGABALIN
     Dosage: 200 MG, UNK (0.33/ DAY)
     Route: 065
  81. PREGABALIN [Concomitant]
     Active Substance: PREGABALIN
     Dosage: 600 MG, UNK
     Route: 065
  82. PREGABALIN [Concomitant]
     Active Substance: PREGABALIN
     Dosage: 100 MG, 0.16/ DAY (2-2-2)
     Route: 065
  83. PREGABALIN [Concomitant]
     Active Substance: PREGABALIN
     Dosage: 200 MG, UNK (0.33/ DAY)
     Route: 065
  84. PREGABALIN [Concomitant]
     Active Substance: PREGABALIN
     Dosage: 600 MG, UNK
     Route: 065
  85. PREGABALIN [Concomitant]
     Active Substance: PREGABALIN
     Dosage: 100 MG, 0.16/ DAY (2-2-2) [FREQ:16 D;2-2-2]
     Route: 065
  86. PREGABALIN [Concomitant]
     Active Substance: PREGABALIN
     Dosage: 200 MG, UNK (0.33/ DAY) [FREQ: 33 D]
     Route: 065
  87. PREGABALIN [Concomitant]
     Active Substance: PREGABALIN
     Dosage: 300 MG, DAILY (100 MILLIGRAM, TID)
     Route: 065
  88. PREGABALIN [Concomitant]
     Active Substance: PREGABALIN
     Dosage: 600 MG, UNK
  89. PREGABALIN [Concomitant]
     Active Substance: PREGABALIN
     Dosage: 100 MG, 0.16/ DAY (2-2-2) [FREQ:16 D;2-2-2]
  90. PREGABALIN [Concomitant]
     Active Substance: PREGABALIN
     Dosage: 200 MG, UNK (0.33/ DAY) [FREQ: 33 D]
  91. PREGABALIN [Concomitant]
     Active Substance: PREGABALIN
     Dosage: 300 MG, DAILY (100 MILLIGRAM, TID)
  92. PREGABALIN [Concomitant]
     Active Substance: PREGABALIN
     Dosage: 600 MG, UNK
     Route: 065
  93. PREGABALIN [Concomitant]
     Active Substance: PREGABALIN
     Dosage: 100 MG, 0.16/ DAY (2-2-2) [FREQ:16 D;2-2-2]
     Route: 065
  94. PREGABALIN [Concomitant]
     Active Substance: PREGABALIN
     Dosage: 200 MG, UNK (0.33/ DAY) [FREQ: 33 D]
  95. PREGABALIN [Concomitant]
     Active Substance: PREGABALIN
     Dosage: 300 MG, DAILY (100 MILLIGRAM, TID)
  96. PREGABALIN [Concomitant]
     Active Substance: PREGABALIN
     Dosage: 600 MG, UNK
  97. PREGABALIN [Concomitant]
     Active Substance: PREGABALIN
     Dosage: 100 MG, UNK (FREQ:.16 D;2-2-2)
  98. PREGABALIN [Concomitant]
     Active Substance: PREGABALIN
     Dosage: 200 MG, UNK (0.33/ DAY) [FREQ: 33 D]
  99. PREGABALIN [Concomitant]
     Active Substance: PREGABALIN
     Dosage: 300 MG, DAILY (100 MILLIGRAM, TID)
  100. PREGABALIN [Concomitant]
     Active Substance: PREGABALIN
     Dosage: 600 MG, UNK
  101. PREGABALIN [Concomitant]
     Active Substance: PREGABALIN
     Dosage: 100 MG, UNK (FREQ:.16 D;2-2-2)
  102. PREGABALIN [Concomitant]
     Active Substance: PREGABALIN
     Dosage: 200 MG, UNK (0.33/ DAY) [FREQ: 33 D]
  103. PREGABALIN [Concomitant]
     Active Substance: PREGABALIN
     Dosage: 600 MG, UNK
  104. PREGABALIN [Concomitant]
     Active Substance: PREGABALIN
     Dosage: 100 MG, UNK (FREQ:.16 D;2-2-2)
  105. PREGABALIN [Concomitant]
     Active Substance: PREGABALIN
     Dosage: 200 MG, UNK (0.33/ DAY) [FREQ: 33 D]
  106. MIRTAZAPINE [Concomitant]
     Active Substance: MIRTAZAPINE
     Indication: Product used for unknown indication
     Dosage: 7.5 MG, UNK
  107. DESOGESTREL [Concomitant]
     Active Substance: DESOGESTREL
     Indication: Product used for unknown indication
     Dosage: UNK
     Route: 065
  108. DESOGESTREL [Concomitant]
     Active Substance: DESOGESTREL
     Dosage: UNK
     Route: 065
  109. DESOGESTREL [Concomitant]
     Active Substance: DESOGESTREL
     Dosage: UNK
     Route: 065
  110. DESOGESTREL [Concomitant]
     Active Substance: DESOGESTREL
     Dosage: UNK
     Route: 065
  111. DESOGESTREL [Concomitant]
     Active Substance: DESOGESTREL
     Dosage: UNK
  112. MOVICOL                            /01749801/ [Concomitant]
     Indication: Product used for unknown indication
     Dosage: UNK (1-0-0)
     Route: 065
  113. MOVICOL                            /01749801/ [Concomitant]
     Dosage: UNK UNK, DAILY (1-0-0)
     Route: 065
  114. MOVICOL                            /01749801/ [Concomitant]
     Dosage: 1 UNK, DAILY (1-0-0)
     Route: 065
  115. MOVICOL                            /01749801/ [Concomitant]
     Dosage: 1 DF, DAILY
     Route: 065
  116. MOVICOL                            /01749801/ [Concomitant]
     Dosage: UNK
     Route: 065
  117. MOVICOL                            /01749801/ [Concomitant]
     Dosage: UNK, DAILY
     Route: 065
  118. MOVICOL                            /01749801/ [Concomitant]
     Dosage: UNK, DAILY
     Route: 065
  119. DULOXETINE [Concomitant]
     Active Substance: DULOXETINE
     Indication: Product used for unknown indication
     Dosage: 1-0-1
     Route: 065
  120. DULOXETINE [Concomitant]
     Active Substance: DULOXETINE
     Dosage: 60 MG, DAILY (30 MILLIGRAM, BID)
     Route: 065
  121. DULOXETINE [Concomitant]
     Active Substance: DULOXETINE
     Dosage: 30 MG, UNK
     Route: 065
  122. DULOXETINE [Concomitant]
     Active Substance: DULOXETINE
     Dosage: 30 MG, BID (1-0-1)
     Route: 065
  123. DULOXETINE [Concomitant]
     Active Substance: DULOXETINE
     Dosage: 30 MG, BID (1-0-1)
  124. MOVICOL [Concomitant]
     Active Substance: POLYETHYLENE GLYCOL 3350\POTASSIUM CHLORIDE\SODIUM BICARBONATE\SODIUM CHLORIDE
     Indication: Product used for unknown indication
     Dosage: 1-0-0
     Route: 065
  125. MOVICOL [Concomitant]
     Active Substance: POLYETHYLENE GLYCOL 3350\POTASSIUM CHLORIDE\SODIUM BICARBONATE\SODIUM CHLORIDE
     Dosage: 1-0-0
     Route: 065
  126. NALOXONE HYDROCHLORIDE [Suspect]
     Active Substance: NALOXONE HYDROCHLORIDE
     Indication: Product used for unknown indication
     Dosage: 5 MG, BID (TOGETHER WITH OXYCODON)
     Route: 065
     Dates: end: 20210513
  127. NALOXONE HYDROCHLORIDE [Suspect]
     Active Substance: NALOXONE HYDROCHLORIDE
     Dosage: 1-0-0
     Route: 065
  128. MOVICOL [Concomitant]
     Active Substance: POLYETHYLENE GLYCOL 3350\POTASSIUM CHLORIDE\SODIUM BICARBONATE\SODIUM CHLORIDE
     Indication: Product used for unknown indication
     Dosage: 1-0-0
  129. MOVICOL [Concomitant]
     Active Substance: POLYETHYLENE GLYCOL 3350\POTASSIUM CHLORIDE\SODIUM BICARBONATE\SODIUM CHLORIDE
     Dosage: 1-0-0
  130. METAMIZOLE [Concomitant]
     Active Substance: METAMIZOLE
     Dosage: 500 MILLIGRAM
  131. PANTOPRAZOLE [Concomitant]
     Active Substance: PANTOPRAZOLE
     Dosage: 20 MILLIGRAM
  132. MOVICOL [Concomitant]
     Active Substance: POLYETHYLENE GLYCOL 3350\POTASSIUM CHLORIDE\SODIUM BICARBONATE\SODIUM CHLORIDE
     Dosage: UNK
  133. MAGNESIUM [Concomitant]
     Active Substance: MAGNESIUM
     Dosage: 400 MILLIGRAM

REACTIONS (66)
  - Multiple sclerosis relapse [Recovering/Resolving]
  - Loss of consciousness [Not Recovered/Not Resolved]
  - Benign neoplasm of thyroid gland [Not Recovered/Not Resolved]
  - Thyroid mass [Not Recovered/Not Resolved]
  - Dry skin [Recovering/Resolving]
  - Urinary incontinence [Recovered/Resolved]
  - Ocular discomfort [Recovering/Resolving]
  - Alopecia [Recovered/Resolved]
  - Musculoskeletal stiffness [Recovered/Resolved]
  - Constipation [Recovered/Resolved]
  - Pain [Recovering/Resolving]
  - Anal incontinence [Recovered/Resolved]
  - Head discomfort [Recovered/Resolved]
  - Back pain [Not Recovered/Not Resolved]
  - Mood swings [Recovered/Resolved]
  - Dyskinesia [Recovered/Resolved]
  - Cognitive disorder [Recovered/Resolved]
  - Photophobia [Recovering/Resolving]
  - Menstruation irregular [Unknown]
  - Tongue movement disturbance [Recovering/Resolving]
  - Memory impairment [Unknown]
  - Muscular weakness [Recovered/Resolved]
  - Joint range of motion decreased [Recovered/Resolved]
  - Odynophagia [Recovering/Resolving]
  - Vaginal discharge [Unknown]
  - Muscle spasticity [Recovered/Resolved]
  - Coordination abnormal [Recovered/Resolved]
  - Feeling cold [Recovered/Resolved]
  - Hyperacusis [Recovering/Resolving]
  - Fungal foot infection [Recovered/Resolved]
  - Pain in extremity [Not Recovered/Not Resolved]
  - Sensory disturbance [Recovering/Resolving]
  - Irritability [Recovering/Resolving]
  - Painful respiration [Recovered/Resolved]
  - Muscle spasms [Recovered/Resolved]
  - Eye pain [Recovering/Resolving]
  - Fall [Unknown]
  - Dyspnoea [Recovered/Resolved]
  - Speech disorder [Recovered/Resolved]
  - Chills [Recovered/Resolved]
  - Dysphagia [Recovered/Resolved]
  - Vomiting [Recovered/Resolved]
  - Headache [Recovered/Resolved]
  - Fatigue [Recovered/Resolved]
  - Fatigue [Recovered/Resolved]
  - Fatigue [Recovered/Resolved]
  - Asthenia [Recovered/Resolved]
  - Arthralgia [Not Recovered/Not Resolved]
  - Tooth injury [Recovered/Resolved]
  - Nail ridging [Not Recovered/Not Resolved]
  - Weight increased [Recovering/Resolving]
  - Acne pustular [Recovered/Resolved]
  - Chills [Recovered/Resolved]
  - Fatigue [Recovered/Resolved]
  - Pruritus [Recovered/Resolved]
  - Off label use [Unknown]
  - Sleep apnoea syndrome [Recovering/Resolving]
  - Muscle twitching [Recovered/Resolved]
  - Burning sensation [Recovered/Resolved]
  - Confusional state [Not Recovered/Not Resolved]
  - Fatigue [Recovered/Resolved]
  - Ill-defined disorder [Unknown]
  - COVID-19 [Recovered/Resolved]
  - Arthropod bite [Unknown]
  - Productive cough [Recovered/Resolved]
  - Fatigue [Recovered/Resolved]

NARRATIVE: CASE EVENT DATE: 20200206
